FAERS Safety Report 24254446 (Version 1)
Quarter: 2024Q3

REPORT INFORMATION
  Report Type: Spontaneous
  Country: US (occurrence: None)
  Receive Date: 20240826
  Receipt Date: 20240826
  Transmission Date: 20241017
  Serious: Yes (Disabling, Other)
  Sender: Public
  Company Number: None

PATIENT
  Age: 32 Year
  Sex: Female
  Weight: 44.55 kg

DRUGS (1)
  1. SULFAMETHOXAZOLE\TRIMETHOPRIM [Suspect]
     Active Substance: SULFAMETHOXAZOLE\TRIMETHOPRIM
     Indication: Paronychia
     Dosage: OTHER QUANTITY : 14 TABLET(S);?FREQUENCY : EVERY 12 HOURS;?
     Route: 048
     Dates: start: 20240824, end: 20240824

REACTIONS (11)
  - Vulvovaginal burning sensation [None]
  - Vulvovaginal pruritus [None]
  - Vulvovaginal swelling [None]
  - Vulvovaginal pain [None]
  - Urticaria [None]
  - Feeling hot [None]
  - Panic attack [None]
  - Therapy cessation [None]
  - Anorectal disorder [None]
  - Swelling [None]
  - Skin exfoliation [None]

NARRATIVE: CASE EVENT DATE: 20240824
